FAERS Safety Report 15429042 (Version 3)
Quarter: 2019Q3

REPORT INFORMATION
  Report Type: Spontaneous
  Country: US (occurrence: US)
  Receive Date: 20180926
  Receipt Date: 20190826
  Transmission Date: 20191004
  Serious: No
  Sender: FDA-Public Use
  Company Number: US-PFIZER INC-2018383767

PATIENT
  Age: 71 Year
  Sex: Female

DRUGS (14)
  1. ZOLPIDEM [Concomitant]
     Active Substance: ZOLPIDEM TARTRATE
     Dosage: UNK
     Dates: start: 2011
  2. LYRICA CR [Suspect]
     Active Substance: PREGABALIN
     Indication: PARAESTHESIA
     Dosage: 2 DF, UNK (2 TABLETS)
     Dates: start: 2018, end: 2018
  3. ESOMEPRAZOLE. [Concomitant]
     Active Substance: ESOMEPRAZOLE MAGNESIUM
     Dosage: UNK
  4. LYRICA CR [Suspect]
     Active Substance: PREGABALIN
     Dosage: 150 MG, 1X/DAY
     Dates: start: 20180719
  5. RUBRACA [Suspect]
     Active Substance: RUCAPARIB CAMSYLATE
     Dosage: 1000 MG, DAILY (250 MG/4 PILLS DAILY)
     Dates: start: 20180618
  6. LYRICA CR [Suspect]
     Active Substance: PREGABALIN
     Dosage: 1 DF, ALTERNATE DAY
  7. LYRICA CR [Suspect]
     Active Substance: PREGABALIN
     Dosage: UNK
     Dates: start: 201808
  8. NEXIUM [Concomitant]
     Active Substance: ESOMEPRAZOLE MAGNESIUM
     Dosage: UNK
     Dates: start: 2010
  9. POTASSIUM [Concomitant]
     Active Substance: POTASSIUM
     Dosage: UNK
     Dates: start: 2017
  10. CLARITIN [Concomitant]
     Active Substance: LORATADINE
     Dosage: UNK
     Dates: start: 2017
  11. LYRICA CR [Suspect]
     Active Substance: PREGABALIN
     Dosage: 1 DF, DAILY (DECREASED HER DOSE OF PREGABALIN TO ONE TABLET DAILY)
     Dates: start: 2018, end: 20180821
  12. RUBRACA [Suspect]
     Active Substance: RUCAPARIB CAMSYLATE
     Indication: OVARIAN CANCER
     Dosage: 500 MG, 2X/DAY
     Dates: start: 20180710, end: 20180821
  13. LORATADINE. [Concomitant]
     Active Substance: LORATADINE
     Dosage: UNK
  14. VITAMIN C [Concomitant]
     Active Substance: ASCORBIC ACID
     Dosage: UNK
     Dates: start: 2016

REACTIONS (9)
  - Neoplasm progression [Unknown]
  - Paraesthesia [Recovering/Resolving]
  - Intentional product use issue [Not Recovered/Not Resolved]
  - Dizziness [Recovered/Resolved]
  - Intentional product misuse [Unknown]
  - Feeling abnormal [Unknown]
  - Constipation [Recovered/Resolved]
  - Diarrhoea [Recovered/Resolved]
  - Euphoric mood [Recovered/Resolved]

NARRATIVE: CASE EVENT DATE: 2018
